FAERS Safety Report 22610957 (Version 1)
Quarter: 2023Q2

REPORT INFORMATION
  Report Type: Spontaneous
  Country: DE (occurrence: DE)
  Receive Date: 20230616
  Receipt Date: 20230616
  Transmission Date: 20230722
  Serious: Yes (Hospitalization, Other)
  Sender: FDA-Public Use
  Company Number: DE-SUN PHARMACEUTICAL INDUSTRIES LTD-2023R1-394622

PATIENT
  Age: 17 Year
  Sex: Male
  Weight: 98 kg

DRUGS (1)
  1. IBUPROFEN [Suspect]
     Active Substance: IBUPROFEN
     Indication: Pain
     Dosage: 41 MILLIGRAM/KILOGRAM, DAILY
     Route: 065

REACTIONS (1)
  - Acute kidney injury [Unknown]
